FAERS Safety Report 4476555-8 (Version None)
Quarter: 2004Q4

REPORT INFORMATION
  Report Type: 
  Country: None (occurrence: None)
  Receive Date: 20041012
  Receipt Date: 20041001
  Transmission Date: 20050328
  Serious: Yes (Other)
  Sender: FDA-Public Use
  Company Number: 163-20785-04100155

PATIENT

DRUGS (1)
  1. THALOMID [Suspect]
     Indication: MYELOID METAPLASIA
     Dosage: 50 MG/D PO (CYCLE = 28 DAYS)
     Dates: start: 20020813

REACTIONS (4)
  - ANOREXIA [None]
  - DYSPNOEA [None]
  - EXTRAMEDULLARY HAEMOPOIESIS [None]
  - PLEURITIC PAIN [None]
